FAERS Safety Report 16929108 (Version 4)
Quarter: 2019Q4

REPORT INFORMATION
  Report Type: Spontaneous
  Country: CL (occurrence: CL)
  Receive Date: 20191017
  Receipt Date: 20191028
  Transmission Date: 20200122
  Serious: Yes (Hospitalization, Other)
  Sender: FDA-Public Use
  Company Number: CL-SA-2019SA281677

PATIENT
  Age: 45 Year
  Sex: Male

DRUGS (2)
  1. TAMSULOSIN HYDROCHLORIDE. [Suspect]
     Active Substance: TAMSULOSIN HYDROCHLORIDE
     Indication: RENAL COLIC
     Dosage: 0.4 MG, ONCE DAILY (2 DOSES)
  2. KETOROLAC [Concomitant]
     Active Substance: KETOROLAC TROMETHAMINE
     Dosage: 10 MG, TID

REACTIONS (7)
  - Prescription drug used without a prescription [Unknown]
  - Haematuria [Unknown]
  - Ischaemia [Recovered/Resolved]
  - Product use in unapproved indication [Unknown]
  - Self-medication [Recovered/Resolved]
  - Priapism [Recovered/Resolved]
  - Painful erection [Recovered/Resolved]
